FAERS Safety Report 13943474 (Version 1)
Quarter: 2017Q3

REPORT INFORMATION
  Report Type: Spontaneous
  Country: US (occurrence: None)
  Receive Date: 20170907
  Receipt Date: 20170907
  Transmission Date: 20171128
  Serious: Yes (Death, Hospitalization)
  Sender: FDA-Public Use
  Company Number: None

PATIENT
  Age: 45 Year
  Sex: Male
  Weight: 48.08 kg

DRUGS (2)
  1. OXYGEN. [Concomitant]
     Active Substance: OXYGEN
  2. HEPARIN [Suspect]
     Active Substance: HEPARIN SODIUM

REACTIONS (4)
  - Blood pressure decreased [None]
  - Fluid overload [None]
  - Overdose [None]
  - Cardiac failure [None]

NARRATIVE: CASE EVENT DATE: 20170806
